FAERS Safety Report 9285024 (Version 4)
Quarter: 2013Q2

REPORT INFORMATION
  Report Type: Spontaneous
  Country: JP (occurrence: JP)
  Receive Date: 20130513
  Receipt Date: 20130620
  Transmission Date: 20140414
  Serious: Yes (Death, Other)
  Sender: FDA-Public Use
  Company Number: PHHY2013JP040211

PATIENT
  Age: 97 Year
  Sex: Female
  Weight: 44 kg

DRUGS (10)
  1. TEGRETOL [Suspect]
     Indication: PARTIAL SEIZURES
     Dosage: 100 MG, BID
     Route: 048
     Dates: start: 20130303, end: 20130312
  2. TEGRETOL [Suspect]
     Dosage: 50 MG, BID
     Route: 048
     Dates: start: 20130313, end: 20130419
  3. GASTER D [Suspect]
     Indication: GASTRITIS
     Dosage: 20 MG, DAILY
     Route: 048
     Dates: end: 20130419
  4. CEFTAZIDIM [Suspect]
     Indication: URINARY TRACT INFECTION
     Dosage: 1 G, BID
     Route: 042
     Dates: start: 20130414, end: 20130419
  5. WARFARIN [Concomitant]
     Indication: ATRIAL FIBRILLATION
     Dosage: 1 MG, UNK
     Route: 048
  6. EDIROL [Concomitant]
     Indication: OSTEOPOROSIS
     Dosage: 0.75 UG
     Route: 048
     Dates: end: 20130423
  7. FULCALIQ [Concomitant]
     Indication: NUTRITIONAL SUPPLEMENTATION
     Dosage: 1103 ML, UNK
     Dates: start: 20130320, end: 20130425
  8. KCL [Concomitant]
     Indication: MINERAL SUPPLEMENTATION
     Dosage: 20 ML, UNK
     Dates: start: 20130401, end: 20130425
  9. HUMULIN R [Concomitant]
     Indication: DIABETES MELLITUS MANAGEMENT
     Dosage: 20 IU, UNK
     Dates: start: 20130320, end: 20130425
  10. GLUCOSE [Concomitant]
     Indication: NUTRITIONAL SUPPLEMENTATION
     Dosage: 250 ML, UNK
     Dates: start: 20130322

REACTIONS (13)
  - Cardiac failure chronic [Fatal]
  - Cyanosis [Fatal]
  - Hypopnoea [Fatal]
  - Oedema peripheral [Fatal]
  - Eyelid oedema [Fatal]
  - Urine output decreased [Fatal]
  - Oxygen saturation decreased [Fatal]
  - Blood pressure decreased [Fatal]
  - Heart rate decreased [Fatal]
  - Cardiac arrest [Unknown]
  - Respiratory arrest [Unknown]
  - Pancytopenia [Recovered/Resolved]
  - Body temperature decreased [Unknown]
